FAERS Safety Report 24525904 (Version 5)
Quarter: 2024Q4

REPORT INFORMATION
  Report Type: Report from Study
  Country: US (occurrence: US)
  Receive Date: 20241020
  Receipt Date: 20241129
  Transmission Date: 20250115
  Serious: Yes (Disabling, Other)
  Sender: ABBVIE
  Company Number: US-ABBVIE-5894793

PATIENT
  Age: 58 Year
  Sex: Male
  Weight: 88 kg

DRUGS (157)
  1. VRAYLAR [Suspect]
     Active Substance: CARIPRAZINE
     Indication: Bipolar disorder
     Route: 048
     Dates: start: 20191215, end: 20231215
  2. VRAYLAR [Suspect]
     Active Substance: CARIPRAZINE
     Indication: Bipolar disorder
     Route: 048
  3. VRAYLAR [Suspect]
     Active Substance: CARIPRAZINE
     Indication: Bipolar disorder
     Route: 048
     Dates: start: 20200215, end: 20200315
  4. MIRTAZAPINE [Suspect]
     Active Substance: MIRTAZAPINE
     Indication: Bipolar disorder
     Dosage: STRENGTH: 7.5 MILLIGRAM, PILL
     Route: 048
     Dates: start: 20231115, end: 20240112
  5. MIRTAZAPINE [Suspect]
     Active Substance: MIRTAZAPINE
     Indication: Bipolar disorder
     Dosage: FORM STRENGTH: 7.5MG, 1/DAY PM
     Route: 065
     Dates: start: 2023
  6. MIRTAZAPINE [Suspect]
     Active Substance: MIRTAZAPINE
     Indication: Bipolar disorder
     Dosage: FORM STRENGTH: 7.5MG, 1/DAY PM LAST ADMIN DATE 2024
     Route: 065
     Dates: start: 202403
  7. NAPROXEN [Concomitant]
     Active Substance: NAPROXEN
     Indication: Pain
     Dosage: FORM STRENGTH: 500 MG 2X DAY
     Dates: start: 2017
  8. NEVIRAPINE [Concomitant]
     Active Substance: NEVIRAPINE
     Indication: HIV infection
     Dosage: FORM STRENGTH: 400 MG/AM
  9. OLANZAPINE [Concomitant]
     Active Substance: OLANZAPINE
     Indication: Antipsychotic therapy
     Dosage: FORM STRENGTH: 10 MG
  10. TRIZIVIR [Concomitant]
     Active Substance: ABACAVIR SULFATE\LAMIVUDINE\ZIDOVUDINE
     Indication: HIV infection
     Dosage: AM/PM
  11. BYSTOLIC [Concomitant]
     Active Substance: NEBIVOLOL HYDROCHLORIDE
     Indication: Blood pressure abnormal
     Route: 048
  12. DOXEPIN [Concomitant]
     Active Substance: DOXEPIN
     Indication: Depression
     Dosage: FORM STRENGTH: 25 MG
  13. LISINOPRIL [Concomitant]
     Active Substance: LISINOPRIL
     Indication: Blood pressure abnormal
     Route: 048
  14. METFORMIN [Concomitant]
     Active Substance: METFORMIN HYDROCHLORIDE
     Indication: Blood glucose abnormal
     Route: 048
  15. METFORMIN [Concomitant]
     Active Substance: METFORMIN HYDROCHLORIDE
     Indication: Blood glucose abnormal
     Dosage: FORM STRENGTH: 500MG 1/DAY PM
     Dates: start: 2021
  16. METFORMIN [Concomitant]
     Active Substance: METFORMIN HYDROCHLORIDE
     Indication: Blood glucose abnormal
     Dosage: FORM STRENGTH: 500MG 1/DAY PM
     Dates: start: 2022
  17. METFORMIN [Concomitant]
     Active Substance: METFORMIN HYDROCHLORIDE
     Indication: Blood glucose abnormal
     Dosage: FORM STRENGTH: 500MG 2/DAY AM
     Dates: start: 2023
  18. METFORMIN [Concomitant]
     Active Substance: METFORMIN HYDROCHLORIDE
     Indication: Blood glucose abnormal
     Dosage: FORM STRENGTH: 500MG 2/DAY AM?LAST ADMIN DATE: 2024
     Dates: start: 202403
  19. METFORMIN [Concomitant]
     Active Substance: METFORMIN HYDROCHLORIDE
     Indication: Blood glucose abnormal
     Dosage: FORM STRENGTH: 500MG 1/AM-1 PM
     Dates: start: 202405
  20. TADALAFIL [Concomitant]
     Active Substance: TADALAFIL
     Indication: Benign prostatic hyperplasia
     Route: 048
  21. TADALAFIL [Concomitant]
     Active Substance: TADALAFIL
     Indication: Benign prostatic hyperplasia
     Dosage: FORM STRENGTH: 5 MG, 1/DAY AM?LAST ADMIN DATE: 2020
     Dates: start: 2020
  22. TADALAFIL [Concomitant]
     Active Substance: TADALAFIL
     Indication: Benign prostatic hyperplasia
     Dosage: FORM STRENGTH: 5 MG, 1/DAY AM?LAST ADMIN DATE: 2021
     Dates: start: 2021
  23. TADALAFIL [Concomitant]
     Active Substance: TADALAFIL
     Indication: Benign prostatic hyperplasia
     Dosage: FORM STRENGTH: 5 MG, 1/DAY AM?LAST ADMIN DATE: 2022
     Dates: start: 2022
  24. TADALAFIL [Concomitant]
     Active Substance: TADALAFIL
     Indication: Benign prostatic hyperplasia
     Dosage: TIME INTERVAL: AS NECESSARY: FORM STRENGTH: 10 MG
     Dates: start: 2020
  25. TADALAFIL [Concomitant]
     Active Substance: TADALAFIL
     Indication: Benign prostatic hyperplasia
     Dosage: TIME INTERVAL: AS NECESSARY: FORM STRENGTH: 10 MG
     Dates: start: 2021
  26. TADALAFIL [Concomitant]
     Active Substance: TADALAFIL
     Indication: Benign prostatic hyperplasia
     Dosage: TIME INTERVAL: AS NECESSARY: FORM STRENGTH: 10 MG
     Dates: start: 2022
  27. TADALAFIL [Concomitant]
     Active Substance: TADALAFIL
     Indication: Benign prostatic hyperplasia
     Dosage: FORM STRENGTH: 5 MG, 1/DAY AM
     Dates: start: 2023
  28. TADALAFIL [Concomitant]
     Active Substance: TADALAFIL
     Indication: Benign prostatic hyperplasia
     Dosage: FORM STRENGTH: 5 MG, 1/DAY AM?LAST ADMIN DATE: 2024
     Dates: start: 202403
  29. TADALAFIL [Concomitant]
     Active Substance: TADALAFIL
     Indication: Benign prostatic hyperplasia
     Dosage: FORM STRENGTH: 5 MG, 1/DAY AM
     Dates: start: 202405
  30. ROSUVASTATIN [Concomitant]
     Active Substance: ROSUVASTATIN
     Indication: Blood cholesterol abnormal
     Route: 048
  31. ROSUVASTATIN [Concomitant]
     Active Substance: ROSUVASTATIN
     Indication: Blood cholesterol abnormal
     Dosage: FORM STRENGTH: 40 MG, 1/DAY AM
     Dates: start: 2021
  32. ROSUVASTATIN [Concomitant]
     Active Substance: ROSUVASTATIN
     Indication: Blood cholesterol abnormal
     Dosage: FORM STRENGTH: 40 MG, 1/DAY AM
     Dates: start: 2022
  33. ROSUVASTATIN [Concomitant]
     Active Substance: ROSUVASTATIN
     Indication: Blood cholesterol abnormal
     Dosage: FORM STRENGTH: 40 MG, 1/DAY AM
     Dates: start: 2023
  34. ROSUVASTATIN [Concomitant]
     Active Substance: ROSUVASTATIN
     Indication: Blood cholesterol abnormal
     Dosage: FORM STRENGTH: 40 MG, 1/DAY AM?LAST ADMIN DATE: 2024
     Dates: start: 202403
  35. ROSUVASTATIN [Concomitant]
     Active Substance: ROSUVASTATIN
     Indication: Blood cholesterol abnormal
     Dosage: FORM STRENGTH: 40 MG, 1/DAY AM
     Dates: start: 202405
  36. BUPROPION [Concomitant]
     Active Substance: BUPROPION
     Indication: Depression
     Dosage: FORM STRENGTH: 150 MG?LAST ADMIN DATE: 2024
     Route: 048
     Dates: start: 202403
  37. BUPROPION [Concomitant]
     Active Substance: BUPROPION
     Indication: Depression
     Dosage: FORM STRENGTH: 300 MG
     Dates: start: 2017
  38. BUPROPION [Concomitant]
     Active Substance: BUPROPION
     Indication: Depression
     Dosage: FORM STRENGTH: 150 MG, 3 IN AM
     Dates: start: 2018
  39. BUPROPION [Concomitant]
     Active Substance: BUPROPION
     Indication: Depression
     Dosage: FORM STRENGTH: 150 MG, 3 IN AM
     Dates: start: 2019
  40. BUPROPION [Concomitant]
     Active Substance: BUPROPION
     Indication: Depression
     Dosage: FORM STRENGTH: 150 MG
     Route: 048
     Dates: start: 2023
  41. BUPROPION [Concomitant]
     Active Substance: BUPROPION
     Indication: Depression
     Dosage: FORM STRENGTH: 300 MG
     Route: 048
     Dates: start: 202405
  42. BENZTROPINE MESYLATE [Concomitant]
     Active Substance: BENZTROPINE MESYLATE
     Indication: Depression
     Route: 048
  43. BENZTROPINE MESYLATE [Concomitant]
     Active Substance: BENZTROPINE MESYLATE
     Indication: Depression
     Dosage: FORM STRENGTH: 5MG
     Dates: start: 2023
  44. BENZTROPINE MESYLATE [Concomitant]
     Active Substance: BENZTROPINE MESYLATE
     Indication: Depression
     Dosage: FORM STRENGTH: 5MG?LAST ADMIN DATE: 2024
     Dates: start: 202403
  45. VALACYCLOVIR [Concomitant]
     Active Substance: VALACYCLOVIR HYDROCHLORIDE
     Indication: Antiviral prophylaxis
     Dosage: 1/DAY AM
     Dates: start: 2023
  46. VALACYCLOVIR [Concomitant]
     Active Substance: VALACYCLOVIR HYDROCHLORIDE
     Indication: Antiviral prophylaxis
     Dosage: 1/DAY AM?LAST ADMIN DATE: 2024
     Dates: start: 202403
  47. VALACYCLOVIR [Concomitant]
     Active Substance: VALACYCLOVIR HYDROCHLORIDE
     Indication: Antiviral prophylaxis
     Dosage: 1/DAY AM
     Dates: start: 202405
  48. TRIUMEQ [Concomitant]
     Active Substance: ABACAVIR SULFATE\DOLUTEGRAVIR SODIUM\LAMIVUDINE
     Indication: HIV infection
     Dosage: 600-50-300MG TABLET1/DAY AM
     Route: 048
     Dates: start: 2017
  49. TRIUMEQ [Concomitant]
     Active Substance: ABACAVIR SULFATE\DOLUTEGRAVIR SODIUM\LAMIVUDINE
     Indication: HIV infection
     Dosage: 600-50-300MG TABLET1/DAY AM
     Route: 048
     Dates: start: 2018
  50. TRIUMEQ [Concomitant]
     Active Substance: ABACAVIR SULFATE\DOLUTEGRAVIR SODIUM\LAMIVUDINE
     Indication: HIV infection
     Dosage: 600-50-300MG TABLET1/DAY AM
     Route: 048
     Dates: start: 2019
  51. TRIUMEQ [Concomitant]
     Active Substance: ABACAVIR SULFATE\DOLUTEGRAVIR SODIUM\LAMIVUDINE
     Indication: HIV infection
     Dosage: 600-50-300MG TABLET1/DAY AM
     Route: 048
     Dates: start: 2020
  52. TRIUMEQ [Concomitant]
     Active Substance: ABACAVIR SULFATE\DOLUTEGRAVIR SODIUM\LAMIVUDINE
     Indication: HIV infection
     Dosage: 600-50-300MG TABLET1/DAY AM
     Route: 048
     Dates: start: 2021
  53. TRIUMEQ [Concomitant]
     Active Substance: ABACAVIR SULFATE\DOLUTEGRAVIR SODIUM\LAMIVUDINE
     Indication: HIV infection
     Dosage: 600-50-300MG TABLET1/DAY AM
     Route: 048
     Dates: start: 2022
  54. TRIUMEQ [Concomitant]
     Active Substance: ABACAVIR SULFATE\DOLUTEGRAVIR SODIUM\LAMIVUDINE
     Indication: HIV infection
     Dosage: 600-50-300MG TABLET1/DAY AM
     Route: 048
     Dates: start: 2023
  55. TRIUMEQ [Concomitant]
     Active Substance: ABACAVIR SULFATE\DOLUTEGRAVIR SODIUM\LAMIVUDINE
     Indication: HIV infection
     Dosage: 600-50-300MG TABLET1/DAY AM?LAST ADMIN DATE: 2024
     Route: 048
     Dates: start: 202403
  56. TRIUMEQ [Concomitant]
     Active Substance: ABACAVIR SULFATE\DOLUTEGRAVIR SODIUM\LAMIVUDINE
     Indication: HIV infection
     Dosage: 600-50-300MG TABLET1/DAY AM
     Route: 048
     Dates: start: 202405
  57. TESTOSTERONE CYPIONATE [Concomitant]
     Active Substance: TESTOSTERONE CYPIONATE
     Indication: Hypogonadism
     Dosage: 200 M 1/G WEEK
     Route: 048
     Dates: start: 2023
  58. TESTOSTERONE CYPIONATE [Concomitant]
     Active Substance: TESTOSTERONE CYPIONATE
     Indication: Hypogonadism
     Dosage: 200 M 1/G WEEK?LAST ADMIN DATE: 2024
     Route: 048
     Dates: start: 202403
  59. TESTOSTERONE CYPIONATE [Concomitant]
     Active Substance: TESTOSTERONE CYPIONATE
     Indication: Hypogonadism
     Dosage: 200 M 1/G WEEK
     Route: 048
     Dates: start: 202405
  60. CLOMIPHENE [Concomitant]
     Active Substance: CLOMIPHENE
     Indication: Hypogonadism
     Route: 048
  61. CLOMIPHENE [Concomitant]
     Active Substance: CLOMIPHENE
     Indication: Hypogonadism
     Dosage: CIT 50 MG ENERGY
     Dates: start: 2019
  62. CLOMIPHENE [Concomitant]
     Active Substance: CLOMIPHENE
     Indication: Hypogonadism
     Dosage: CIT 50 MG 2/DAY AM
     Dates: start: 2020
  63. CLOMIPHENE [Concomitant]
     Active Substance: CLOMIPHENE
     Indication: Hypogonadism
     Dosage: CIT 50 MG 1X DAY
     Dates: start: 2021
  64. CLOMIPHENE [Concomitant]
     Active Substance: CLOMIPHENE
     Indication: Hypogonadism
     Dosage: CIT 50 MG 1/DAY AM
     Dates: start: 2022
  65. CLOMIPHENE [Concomitant]
     Active Substance: CLOMIPHENE
     Indication: Hypogonadism
     Dosage: CIT 50 MG 1 DAY AM
     Dates: start: 2023
  66. CLOMIPHENE [Concomitant]
     Active Substance: CLOMIPHENE
     Indication: Hypogonadism
     Dosage: CIT 50 MG 1 DAY AM?LAST ADMIN DATE: 2024
     Dates: start: 202403
  67. CLOMIPHENE [Concomitant]
     Active Substance: CLOMIPHENE
     Indication: Hypogonadism
     Dosage: CIT 50 MG 1 DAY AM?LAST ADMIN DATE: 2024
     Dates: start: 202405
  68. VITAMIN D2 [Concomitant]
     Active Substance: ERGOCALCIFEROL
     Indication: Vitamin D deficiency
     Dosage: FORM STRENGTH: 50,000IU, 1/WEEK AM
     Route: 048
  69. ACYCLOVIR [Concomitant]
     Active Substance: ACYCLOVIR
     Indication: Herpes virus infection
     Dosage: FORM STRENGTH: 800MG, 3X WK
     Dates: start: 2017
  70. ACYCLOVIR [Concomitant]
     Active Substance: ACYCLOVIR
     Indication: Herpes virus infection
     Dosage: FORM STRENGTH: 800MG, 3X WK
     Dates: start: 2018
  71. ACYCLOVIR [Concomitant]
     Active Substance: ACYCLOVIR
     Indication: Herpes virus infection
     Dosage: FORM STRENGTH: 800MG, 3X WK
     Dates: start: 2019
  72. ACYCLOVIR [Concomitant]
     Active Substance: ACYCLOVIR
     Indication: Herpes virus infection
     Dosage: FORM STRENGTH: 800MG, 1/DAY AM
     Dates: start: 2020
  73. ALPRAZOLAM [Concomitant]
     Active Substance: ALPRAZOLAM
     Indication: Anxiety
     Dosage: TIME INTERVAL: 0.33333333 DAYS: FORM STRENGTH: 2 MG
  74. CYANOCOBALAMIN [Concomitant]
     Active Substance: CYANOCOBALAMIN
     Indication: Hypovitaminosis
     Dosage: TIME INTERVAL: AS NECESSARY: FORM STRENGTH: 1,000 MCG/ML
  75. CYCLOBENZAPRINE [Concomitant]
     Active Substance: CYCLOBENZAPRINE
     Indication: Pain
     Dosage: FORM STRENGTH: 10 MG, 2X DAY
     Dates: start: 2017
  76. CYCLOBENZAPRINE [Concomitant]
     Active Substance: CYCLOBENZAPRINE
     Indication: Pain
     Dosage: FORM STRENGTH: 10 MG, 2X DAY
     Dates: start: 2018
  77. FENOFIBRATE [Concomitant]
     Active Substance: FENOFIBRATE
     Indication: Blood triglycerides abnormal
     Dosage: FORM STRENGTH: 160 MG/AM
  78. ESZOPICLONE [Concomitant]
     Active Substance: ESZOPICLONE
     Indication: Sleep disorder therapy
     Dosage: 1/DAY PM
     Dates: start: 2020
  79. ESZOPICLONE [Concomitant]
     Active Substance: ESZOPICLONE
     Indication: Sleep disorder therapy
     Dosage: 1/DAY PM
     Dates: start: 2021
  80. MODAFINIL [Concomitant]
     Active Substance: MODAFINIL
     Indication: Hypersomnia
     Dosage: FORM STRENGTH: 200 MG
  81. NUVIGIL [Concomitant]
     Active Substance: ARMODAFINIL
     Indication: Attention deficit hyperactivity disorder
     Dosage: FORM STRENGTH: 250 MG
  82. QUINAPRIL [Concomitant]
     Active Substance: QUINAPRIL
     Indication: Blood pressure abnormal
     Dosage: FORM STRENGTH: 40 MG, AM
     Dates: start: 2017
  83. QUINAPRIL [Concomitant]
     Active Substance: QUINAPRIL
     Indication: Blood pressure abnormal
     Dosage: FORM STRENGTH: 40 MG, AM
     Dates: start: 2018
  84. QUINAPRIL [Concomitant]
     Active Substance: QUINAPRIL
     Indication: Blood pressure abnormal
     Dosage: FORM STRENGTH: 40 MG, AM
     Dates: start: 2019
  85. QUINAPRIL [Concomitant]
     Active Substance: QUINAPRIL
     Indication: Blood pressure abnormal
     Dosage: FORM STRENGTH: 40 MG, 1/DAY AM
     Dates: start: 2020
  86. QUINAPRIL [Concomitant]
     Active Substance: QUINAPRIL
     Indication: Blood pressure abnormal
     Dosage: FORM STRENGTH: 40 MG, 1/DAY AM
     Dates: start: 2021
  87. QUINAPRIL [Concomitant]
     Active Substance: QUINAPRIL
     Indication: Blood pressure abnormal
     Dosage: FORM STRENGTH: 40 MG, 1/DAY AM
     Dates: start: 2022
  88. SEROQUEL [Concomitant]
     Active Substance: QUETIAPINE FUMARATE
     Indication: Antipsychotic therapy
     Dosage: FORM STRENGTH: 200 MG
     Dates: start: 2017
  89. SEROQUEL [Concomitant]
     Active Substance: QUETIAPINE FUMARATE
     Indication: Antipsychotic therapy
     Dosage: FORM STRENGTH: 400 MG
     Dates: start: 2018
  90. SEROQUEL [Concomitant]
     Active Substance: QUETIAPINE FUMARATE
     Indication: Antipsychotic therapy
     Dosage: FORM STRENGTH: 400 MG
     Dates: start: 2019
  91. SIMVASTATIN [Concomitant]
     Active Substance: SIMVASTATIN
     Indication: Blood cholesterol abnormal
     Dosage: FORM STRENGTH: 40 MG
  92. TESTOSTERONE [Concomitant]
     Active Substance: TESTOSTERONE
     Indication: Hypogonadism
  93. TRAMADOL HCL [Concomitant]
     Active Substance: TRAMADOL HYDROCHLORIDE
     Indication: Pain
     Dosage: FORM STRENGTH: 50 MG
  94. MODERNA COVID-19 VACCINE [Concomitant]
     Active Substance: ELASOMERAN
     Indication: COVID-19 immunisation
     Dates: start: 20210312, end: 20210312
  95. MODERNA COVID-19 VACCINE [Concomitant]
     Active Substance: ELASOMERAN
     Indication: COVID-19 immunisation
     Dates: start: 20210826, end: 20210826
  96. MODERNA COVID-19 VACCINE [Concomitant]
     Active Substance: ELASOMERAN
     Indication: COVID-19 immunisation
     Dates: start: 20220923, end: 20220923
  97. HUMAN PAPILLOMAVIRUS QUADRIVALENT (TYPES 6, 11, 16, AND 18) VACCINE, R [Concomitant]
     Active Substance: HUMAN PAPILLOMAVIRUS QUADRIVALENT (TYPES 6, 11, 16, AND 18) VACCINE, RECOMBINANT
     Indication: Human papilloma virus immunisation
     Dates: start: 20210505, end: 20210505
  98. HUMAN PAPILLOMAVIRUS QUADRIVALENT (TYPES 6, 11, 16, AND 18) VACCINE, R [Concomitant]
     Active Substance: HUMAN PAPILLOMAVIRUS QUADRIVALENT (TYPES 6, 11, 16, AND 18) VACCINE, RECOMBINANT
     Indication: Human papilloma virus immunisation
     Dates: start: 20220923, end: 20220923
  99. DIPHTHERIA AND TETANUS TOXOIDS AND ACELLULAR PERTUSSIS VACCINE ADSORBE [Concomitant]
     Active Substance: DIPHTHERIA AND TETANUS TOXOIDS AND ACELLULAR PERTUSSIS VACCINE ADSORBED
     Indication: Product used for unknown indication
     Dosage: LAST ADMIN DATE: NOV 2018
     Dates: start: 20181118
  100. DIPHTHERIA AND TETANUS TOXOIDS AND ACELLULAR PERTUSSIS VACCINE ADSORBE [Concomitant]
     Active Substance: DIPHTHERIA AND TETANUS TOXOIDS AND ACELLULAR PERTUSSIS VACCINE ADSORBED
     Indication: Product used for unknown indication
     Dates: start: 20181121
  101. ADDERALL [Concomitant]
     Active Substance: AMPHETAMINE ASPARTATE\AMPHETAMINE SULFATE\DEXTROAMPHETAMINE SACCHARATE\DEXTROAMPHETAMINE SULFATE
     Indication: Attention deficit hyperactivity disorder
     Dosage: FORM STRENGTH: 30 MG, 1/2 4X DAY
     Route: 065
     Dates: start: 2018
  102. ADDERALL [Concomitant]
     Active Substance: AMPHETAMINE ASPARTATE\AMPHETAMINE SULFATE\DEXTROAMPHETAMINE SACCHARATE\DEXTROAMPHETAMINE SULFATE
     Indication: Attention deficit hyperactivity disorder
     Dosage: FORM STRENGTH: 30 MG, 1/2 4X DAY
     Route: 065
     Dates: start: 2019
  103. ADDERALL [Concomitant]
     Active Substance: AMPHETAMINE ASPARTATE\AMPHETAMINE SULFATE\DEXTROAMPHETAMINE SACCHARATE\DEXTROAMPHETAMINE SULFATE
     Indication: Attention deficit hyperactivity disorder
     Dosage: FORM STRENGTH: 15 MG, 1/DAY AM
     Route: 065
     Dates: start: 2020
  104. ADDERALL [Concomitant]
     Active Substance: AMPHETAMINE ASPARTATE\AMPHETAMINE SULFATE\DEXTROAMPHETAMINE SACCHARATE\DEXTROAMPHETAMINE SULFATE
     Indication: Attention deficit hyperactivity disorder
     Dosage: FORM STRENGTH: 15 MG,1/DAY AM
     Route: 065
     Dates: start: 2021
  105. ADDERALL [Concomitant]
     Active Substance: AMPHETAMINE ASPARTATE\AMPHETAMINE SULFATE\DEXTROAMPHETAMINE SACCHARATE\DEXTROAMPHETAMINE SULFATE
     Indication: Attention deficit hyperactivity disorder
     Dosage: FORM STRENGTH: 15 MG, 1/DAY AM
     Route: 065
     Dates: start: 2022
  106. ADDERALL [Concomitant]
     Active Substance: AMPHETAMINE ASPARTATE\AMPHETAMINE SULFATE\DEXTROAMPHETAMINE SACCHARATE\DEXTROAMPHETAMINE SULFATE
     Indication: Attention deficit hyperactivity disorder
     Dosage: TIME INTERVAL: 0.33333333 DAYS: FORM STRENGTH: 20 MG, 3/DAY
     Route: 065
     Dates: start: 2023
  107. ADDERALL [Concomitant]
     Active Substance: AMPHETAMINE ASPARTATE\AMPHETAMINE SULFATE\DEXTROAMPHETAMINE SACCHARATE\DEXTROAMPHETAMINE SULFATE
     Indication: Attention deficit hyperactivity disorder
     Dosage: TIME INTERVAL: 0.33333333 DAYS: FORM STRENGTH: 20 MG, 3/DAY, LAST ADMIN DATE:2024
     Route: 065
     Dates: start: 202403
  108. ADDERALL [Concomitant]
     Active Substance: AMPHETAMINE ASPARTATE\AMPHETAMINE SULFATE\DEXTROAMPHETAMINE SACCHARATE\DEXTROAMPHETAMINE SULFATE
     Indication: Attention deficit hyperactivity disorder
     Dosage: TIME INTERVAL: 0.33333333 DAYS: FORM STRENGTH: 20 MG, 3/DAY, LAST ADMIN DATE:2024
     Route: 065
     Dates: start: 202405
  109. HEPATITIS B VIRUS VACCINE [Concomitant]
     Active Substance: HEPATITIS B VIRUS VACCINE
     Indication: Hepatitis B immunisation
     Dates: start: 20241022, end: 20241022
  110. METHYLPHENIDATE [Concomitant]
     Active Substance: METHYLPHENIDATE
     Indication: Attention deficit hyperactivity disorder
     Dosage: TIME INTERVAL: 0.33333333 DAYS: FORM STRENGTH: 20 MG
     Route: 065
     Dates: start: 2017
  111. CLONAZEPAM [Concomitant]
     Active Substance: CLONAZEPAM
     Indication: Anxiety
     Dosage: TIME INTERVAL: 0.33333333 DAYS: FORM STRENGTH: 2 MG
     Route: 065
     Dates: start: 2017
  112. XANAX [Concomitant]
     Active Substance: ALPRAZOLAM
     Indication: Anxiety
     Dosage: TIME INTERVAL: 0.33333333 DAYS: FORM STRENGTH: 2 MG
     Route: 065
     Dates: start: 2018
  113. ATENOLOL [Concomitant]
     Active Substance: ATENOLOL
     Indication: Blood pressure abnormal
     Dosage: FORM STRENGTH: 100 MG, PM
     Dates: start: 2017
  114. ATENOLOL [Concomitant]
     Active Substance: ATENOLOL
     Indication: Blood pressure abnormal
     Dosage: FORM STRENGTH: 100 MG, PM
     Dates: start: 2018
  115. ATENOLOL [Concomitant]
     Active Substance: ATENOLOL
     Indication: Blood pressure abnormal
     Dosage: FORM STRENGTH: 100 MG, PM
     Dates: start: 2019
  116. ATENOLOL [Concomitant]
     Active Substance: ATENOLOL
     Indication: Blood pressure abnormal
     Dosage: FORM STRENGTH: 100 MG, 1/DAY PM
     Dates: start: 2020
  117. ATENOLOL [Concomitant]
     Active Substance: ATENOLOL
     Indication: Blood pressure abnormal
     Dosage: FORM STRENGTH: 100 MG, 1/DAY PM
     Dates: start: 2021
  118. ATENOLOL [Concomitant]
     Active Substance: ATENOLOL
     Indication: Blood pressure abnormal
     Dosage: FORM STRENGTH: 100 MG, 1/DAY PM
     Dates: start: 2022
  119. ATENOLOL [Concomitant]
     Active Substance: ATENOLOL
     Indication: Blood pressure abnormal
     Dosage: FORM STRENGTH: 25 GM, 1/DAY
     Dates: start: 202403
  120. ATENOLOL [Concomitant]
     Active Substance: ATENOLOL
     Indication: Blood pressure abnormal
     Dosage: FORM STRENGTH: 25 GM, 1/DAY
     Dates: start: 202405
  121. INFLUENZA VIRUS VACCINE [Concomitant]
     Active Substance: INFLUENZA VIRUS VACCINE
     Indication: Influenza immunisation
     Dates: start: 20141222, end: 20141222
  122. INFLUENZA VIRUS VACCINE [Concomitant]
     Active Substance: INFLUENZA VIRUS VACCINE
     Indication: Influenza immunisation
     Dates: start: 20150924, end: 20150924
  123. INFLUENZA VIRUS VACCINE [Concomitant]
     Active Substance: INFLUENZA VIRUS VACCINE
     Indication: Influenza immunisation
     Dates: start: 20161027, end: 20161027
  124. INFLUENZA VIRUS VACCINE [Concomitant]
     Active Substance: INFLUENZA VIRUS VACCINE
     Indication: Influenza immunisation
     Dates: start: 20171207, end: 20171207
  125. INFLUENZA VIRUS VACCINE [Concomitant]
     Active Substance: INFLUENZA VIRUS VACCINE
     Indication: Influenza immunisation
     Dates: start: 20181221, end: 20181221
  126. INFLUENZA VIRUS VACCINE [Concomitant]
     Active Substance: INFLUENZA VIRUS VACCINE
     Indication: Influenza immunisation
     Dates: start: 20191120, end: 20191120
  127. INFLUENZA VIRUS VACCINE [Concomitant]
     Active Substance: INFLUENZA VIRUS VACCINE
     Indication: Influenza immunisation
     Dates: start: 20201015, end: 20201015
  128. INFLUENZA VIRUS VACCINE [Concomitant]
     Active Substance: INFLUENZA VIRUS VACCINE
     Indication: Influenza immunisation
     Dates: start: 20211110, end: 20211110
  129. INFLUENZA VIRUS VACCINE [Concomitant]
     Active Substance: INFLUENZA VIRUS VACCINE
     Indication: Influenza immunisation
     Dates: start: 20221006, end: 20221006
  130. ATORVASTATIN [Concomitant]
     Active Substance: ATORVASTATIN
     Indication: Blood cholesterol abnormal
     Dosage: FORM STRENGTH: 40 MG, AM
     Dates: start: 2017
  131. ATORVASTATIN [Concomitant]
     Active Substance: ATORVASTATIN
     Indication: Blood cholesterol abnormal
     Dosage: FORM STRENGTH: 40 MG, AM
     Dates: start: 2018
  132. ATORVASTATIN [Concomitant]
     Active Substance: ATORVASTATIN
     Indication: Blood cholesterol abnormal
     Dosage: FORM STRENGTH: 40 MG, AM
     Dates: start: 2019
  133. ATORVASTATIN [Concomitant]
     Active Substance: ATORVASTATIN
     Indication: Blood cholesterol abnormal
     Dosage: FORM STRENGTH: 40 MG, 1/DAY AM
     Dates: start: 2020
  134. SILDENAFIL [Concomitant]
     Active Substance: SILDENAFIL
     Indication: Erectile dysfunction
     Dosage: FORM STRENGTH: 20 MG
  135. ANDROGEL [Concomitant]
     Active Substance: TESTOSTERONE
     Indication: Hypogonadism
     Dosage: 1.62% GEL PUMP 2X DAY
     Dates: start: 2018
  136. ANDROGEL [Concomitant]
     Active Substance: TESTOSTERONE
     Indication: Hypogonadism
     Dosage: 1.62% GEL PUMP 2X DAY
     Dates: start: 2019
  137. ANDROGEL [Concomitant]
     Active Substance: TESTOSTERONE
     Indication: Hypogonadism
     Dosage: 1.62% GEL PUMP 2PUMPS/DAY
     Dates: start: 2020
  138. ANDROGEL [Concomitant]
     Active Substance: TESTOSTERONE
     Indication: Hypogonadism
     Dosage: 1.62% GEL PUMP 2PUMPS/DAY
     Dates: start: 2021
  139. ANDROGEL [Concomitant]
     Active Substance: TESTOSTERONE
     Indication: Hypogonadism
     Dosage: 1.62% GEL PUMP 2PUMPS/DAY
     Dates: start: 2022
  140. VOLTAREN [Concomitant]
     Active Substance: DICLOFENAC SODIUM
     Indication: Pain
     Dosage: XR, STRENGTH: 75 MG, 2X DAY
     Dates: start: 2018
  141. TRIAMCINOLONE [Concomitant]
     Active Substance: TRIAMCINOLONE
     Indication: Psoriasis
     Dosage: TIME INTERVAL: AS NECESSARY: FORM STRENGTH: 0.5%
     Dates: start: 2017
  142. GEMFIBROZIL [Concomitant]
     Active Substance: GEMFIBROZIL
     Indication: Blood triglycerides abnormal
     Dosage: FORM STRENGTH: 600 MG
     Route: 065
     Dates: start: 2017
  143. GEMFIBROZIL [Concomitant]
     Active Substance: GEMFIBROZIL
     Indication: Blood triglycerides abnormal
     Dosage: FORM STRENGTH: 600 MG
     Route: 065
     Dates: start: 2018
  144. GEMFIBROZIL [Concomitant]
     Active Substance: GEMFIBROZIL
     Indication: Blood triglycerides abnormal
     Dosage: FORM STRENGTH: 600 MG
     Route: 065
     Dates: start: 2019
  145. VITAMIN D [Concomitant]
     Active Substance: VITAMIN D NOS
     Indication: Vitamin D deficiency
     Dosage: FORM STRENGTH: 5000IU, 1 WK
     Dates: start: 2017
  146. VITAMIN D [Concomitant]
     Active Substance: VITAMIN D NOS
     Indication: Vitamin D deficiency
     Dosage: FORM STRENGTH: 5000IU, 1 WK
     Dates: start: 2018
  147. VITAMIN D [Concomitant]
     Active Substance: VITAMIN D NOS
     Indication: Vitamin D deficiency
     Dosage: FORM STRENGTH: 5000IU, 1 WK
     Dates: start: 2019
  148. VITAMIN D [Concomitant]
     Active Substance: VITAMIN D NOS
     Indication: Vitamin D deficiency
     Dosage: FORM STRENGTH: 1000 IU 1/WK AM
     Dates: start: 2020
  149. VITAMIN D [Concomitant]
     Active Substance: VITAMIN D NOS
     Indication: Vitamin D deficiency
     Dosage: FORM STRENGTH: 5000 IU 1/WK AM
     Dates: start: 2021
  150. VITAMIN D [Concomitant]
     Active Substance: VITAMIN D NOS
     Indication: Vitamin D deficiency
     Dosage: FORM STRENGTH: 2000 IU 1/DAY AM
     Dates: start: 2022
  151. VITAMIN D [Concomitant]
     Active Substance: VITAMIN D NOS
     Indication: Vitamin D deficiency
     Dosage: FORM STRENGTH: 50,000IU 1/WEEK AM?LAST ADMIN DATE: 2023
     Dates: start: 2023
  152. VITAMIN D [Concomitant]
     Active Substance: VITAMIN D NOS
     Indication: Vitamin D deficiency
     Dosage: FORM STRENGTH: 50,000IU 1/WEEK AM?LAST ADMIN DATE: 2024
     Dates: start: 202403
  153. VITAMIN D [Concomitant]
     Active Substance: VITAMIN D NOS
     Indication: Vitamin D deficiency
     Dosage: FORM STRENGTH: 50,000IU 1/WEEK AM
     Dates: start: 202305
  154. VALTREX [Concomitant]
     Active Substance: VALACYCLOVIR HYDROCHLORIDE
     Indication: Antiviral prophylaxis
     Dosage: 1/2 /DAY AM
     Dates: start: 2021
  155. VALTREX [Concomitant]
     Active Substance: VALACYCLOVIR HYDROCHLORIDE
     Indication: Antiviral prophylaxis
     Dosage: 1/2 /DAY AM
     Dates: start: 2022
  156. ANASTROZOLE [Concomitant]
     Active Substance: ANASTROZOLE
     Indication: Blood oestrogen
     Dosage: FORM STRENGTH: 1 MG, PILL
     Route: 048
     Dates: start: 202405
  157. OLANZAPINE [Concomitant]
     Active Substance: OLANZAPINE
     Indication: Antipsychotic therapy
     Dosage: FORM STRENGTH: 5 MG

REACTIONS (63)
  - Major depression [Not Recovered/Not Resolved]
  - Muscle spasms [Unknown]
  - Hepatitis A [Unknown]
  - CD4 lymphocytes decreased [Recovered/Resolved]
  - Influenza [Recovered/Resolved]
  - Adverse drug reaction [Recovered/Resolved]
  - Herpes zoster [Unknown]
  - Tremor [Recovered/Resolved]
  - Thrombocytopenia [Not Recovered/Not Resolved]
  - Morton^s neuralgia [Not Recovered/Not Resolved]
  - Depressed mood [Not Recovered/Not Resolved]
  - Decreased interest [Not Recovered/Not Resolved]
  - Fatigue [Not Recovered/Not Resolved]
  - Weight increased [Recovered/Resolved]
  - Nervousness [Recovered/Resolved]
  - Platelet count decreased [Recovered/Resolved]
  - Blood glucose increased [Recovered/Resolved]
  - CD8 lymphocytes increased [Unknown]
  - CD8 lymphocytes increased [Unknown]
  - CD4/CD8 ratio decreased [Unknown]
  - Blood chloride increased [Recovered/Resolved]
  - Carbon dioxide decreased [Unknown]
  - Urine ketone body present [Recovered/Resolved]
  - Eosinophil count increased [Recovered/Resolved]
  - Blood glucose increased [Recovered/Resolved]
  - Blood testosterone free increased [Unknown]
  - Glycosylated haemoglobin increased [Recovered/Resolved]
  - Blood triglycerides increased [Recovered/Resolved]
  - Low density lipoprotein increased [Unknown]
  - CD4 lymphocytes decreased [Recovered/Resolved]
  - Platelet count decreased [Recovered/Resolved]
  - Lymphocyte count increased [Recovered/Resolved]
  - Blood testosterone increased [Unknown]
  - Lymphocyte count increased [Unknown]
  - Eosinophil count increased [Recovered/Resolved]
  - CD4 lymphocytes decreased [Recovered/Resolved]
  - Blood triglycerides increased [Unknown]
  - Blood testosterone decreased [Unknown]
  - Urine ketone body present [Unknown]
  - CD4 lymphocytes decreased [Unknown]
  - Platelet count decreased [Unknown]
  - Eosinophil count increased [Unknown]
  - Blood glucose increased [Recovered/Resolved]
  - Red cell distribution width increased [Unknown]
  - Blood chloride increased [Unknown]
  - Blood triglycerides increased [Recovered/Resolved]
  - High density lipoprotein decreased [Recovered/Resolved]
  - Glycosylated haemoglobin increased [Recovered/Resolved]
  - Protein urine present [Unknown]
  - Hepatitis A antibody positive [Recovered/Resolved]
  - Oestradiol increased [Unknown]
  - Glycosylated haemoglobin increased [Unknown]
  - Blood glucose increased [Recovered/Resolved]
  - Hepatitis B surface antibody positive [Unknown]
  - CD4 lymphocytes decreased [Unknown]
  - Glycosylated haemoglobin increased [Recovered/Resolved]
  - CD4 lymphocytes decreased [Recovered/Resolved]
  - Red cell distribution width increased [Recovered/Resolved]
  - High density lipoprotein decreased [Unknown]
  - Blood glucose increased [Unknown]
  - Urinary casts present [Unknown]
  - Hepatitis A antibody positive [Unknown]
  - Blood testosterone increased [Unknown]

NARRATIVE: CASE EVENT DATE: 20200215
